FAERS Safety Report 7560250-2 (Version None)
Quarter: 2011Q2

REPORT INFORMATION
  Report Type: 
  Country: None (occurrence: None)
  Receive Date: 20110621
  Receipt Date: 20110616
  Transmission Date: 20111010
  Serious: Yes (Other)
  Sender: FDA-Public Use
  Company Number: FR-ABBOTT-11P-056-0733247-00

PATIENT
  Age: 34 Year
  Sex: Female

DRUGS (7)
  1. DESLORATADINE [Concomitant]
     Indication: PRURITUS
  2. PREDNISONE [Concomitant]
     Indication: SARCOIDOSIS
  3. HUMIRA [Suspect]
     Dates: start: 20110501, end: 20110601
  4. UNSPECIFIED CORTICOSTEROID [Concomitant]
  5. HUMIRA [Suspect]
     Indication: SARCOIDOSIS
     Dates: start: 20090901, end: 20100701
  6. REMICADE [Concomitant]
     Indication: PRODUCT USED FOR UNKNOWN INDICATION
  7. UNSPECIFIED CORTICOSTEROID [Concomitant]
     Indication: SARCOIDOSIS

REACTIONS (6)
  - SERUM SICKNESS [None]
  - PRURITUS [None]
  - OEDEMA PERIPHERAL [None]
  - URINARY TRACT INFECTION [None]
  - ARTHRALGIA [None]
  - PYREXIA [None]
